FAERS Safety Report 12895586 (Version 2)
Quarter: 2016Q4

REPORT INFORMATION
  Report Type: Spontaneous
  Country: CH (occurrence: CH)
  Receive Date: 20161030
  Receipt Date: 20161101
  Transmission Date: 20170207
  Serious: Yes (Life-Threatening, Hospitalization, Other)
  Sender: FDA-Public Use
  Company Number: CH-009507513-1610CHE014021

PATIENT
  Age: 19 Year
  Sex: Female
  Weight: 36 kg

DRUGS (2)
  1. BELARINA [Concomitant]
     Indication: CONTRACEPTION
     Dosage: UNK
     Dates: end: 20161026
  2. REMERON [Suspect]
     Active Substance: MIRTAZAPINE
     Indication: ANOREXIA NERVOSA
     Dosage: 15 MG, BID
     Route: 048
     Dates: start: 20161011, end: 20161021

REACTIONS (7)
  - Pancytopenia [Recovering/Resolving]
  - Nephropathy [Recovering/Resolving]
  - Myopathy [Unknown]
  - Gamma-glutamyltransferase increased [Recovering/Resolving]
  - Product use issue [Unknown]
  - Blood alkaline phosphatase increased [Recovering/Resolving]
  - Rhabdomyolysis [Recovering/Resolving]

NARRATIVE: CASE EVENT DATE: 201610
